FAERS Safety Report 14126344 (Version 1)
Quarter: 2017Q4

REPORT INFORMATION
  Report Type: Not Available
  Country: US (occurrence: US)
  Receive Date: 20171025
  Receipt Date: 20171025
  Transmission Date: 20180321
  Serious: No
  Sender: FDA-Public Use
  Company Number: US-NEUROCRINE BIOSCIENCES INC.-2017NBI01081

PATIENT
  Age: 68 Year
  Sex: Female

DRUGS (15)
  1. METOPROLOL SUCCINATE. [Concomitant]
     Active Substance: METOPROLOL SUCCINATE
  2. OMEPRAZOLE. [Concomitant]
     Active Substance: OMEPRAZOLE
  3. LIOTHYRONINE [Concomitant]
     Active Substance: LIOTHYRONINE
  4. AREDS 2 EYE VITAMIN [Concomitant]
  5. LAMOTRIGINE. [Concomitant]
     Active Substance: LAMOTRIGINE
  6. INGREZZA [Suspect]
     Active Substance: VALBENAZINE
     Route: 048
  7. TOLTERODINE [Concomitant]
     Active Substance: TOLTERODINE
  8. VITAMIN D [Concomitant]
     Active Substance: CHOLECALCIFEROL
  9. FLUOXETINE [Concomitant]
     Active Substance: FLUOXETINE HYDROCHLORIDE
  10. TRASIBA [Concomitant]
  11. SAPHRIS [Concomitant]
     Active Substance: ASENAPINE MALEATE
  12. INGREZZA [Suspect]
     Active Substance: VALBENAZINE
     Indication: TARDIVE DYSKINESIA
     Route: 048
     Dates: start: 201709, end: 201709
  13. SODIUM BICARBONATE. [Concomitant]
     Active Substance: SODIUM BICARBONATE
  14. SYNTHROID [Concomitant]
     Active Substance: LEVOTHYROXINE SODIUM
  15. LATUDA [Concomitant]
     Active Substance: LURASIDONE HYDROCHLORIDE

REACTIONS (2)
  - Nervousness [Unknown]
  - Anxiety [Unknown]

NARRATIVE: CASE EVENT DATE: 201709
